FAERS Safety Report 8265778-8 (Version None)
Quarter: 2012Q2

REPORT INFORMATION
  Report Type: 
  Country: None (occurrence: None)
  Receive Date: 20120406
  Receipt Date: 20120402
  Transmission Date: 20120825
  Serious: Yes (Other)
  Sender: FDA-Public Use
  Company Number: PHHY2012CA021729

PATIENT
  Sex: Female

DRUGS (2)
  1. GILENYA [Suspect]
     Indication: MULTIPLE SCLEROSIS
     Dosage: 0.5 MG, QD
     Route: 048
     Dates: start: 20120312, end: 20120313
  2. VALACICLOVIR [Concomitant]
     Indication: CORNEAL LESION
     Dosage: UNK UKN, UNK

REACTIONS (3)
  - CORNEAL LESION [None]
  - KERATITIS HERPETIC [None]
  - ATRIOVENTRICULAR BLOCK SECOND DEGREE [None]
